FAERS Safety Report 8056965-2 (Version None)
Quarter: 2012Q1

REPORT INFORMATION
  Report Type: 
  Country: None (occurrence: None)
  Receive Date: 20120119
  Receipt Date: 20120110
  Transmission Date: 20120608
  Serious: Yes (Hospitalization)
  Sender: FDA-Public Use
  Company Number: US-BRISTOL-MYERS SQUIBB COMPANY-16341893

PATIENT
  Age: 58 Year
  Sex: Female

DRUGS (2)
  1. ORENCIA [Suspect]
     Dosage: LAST INFUSION ON 03DEC11
  2. FLU VACCINE [Concomitant]
     Dates: start: 20111101

REACTIONS (2)
  - HAEMOPTYSIS [None]
  - UPPER RESPIRATORY TRACT INFECTION [None]
